FAERS Safety Report 19929310 (Version 3)
Quarter: 2022Q1

REPORT INFORMATION
  Report Type: Spontaneous
  Country: DE (occurrence: DE)
  Receive Date: 20211007
  Receipt Date: 20220301
  Transmission Date: 20220423
  Serious: Yes (Life-Threatening, Other)
  Sender: FDA-Public Use
  Company Number: DE-CELLTRION HEALTHCARE HUNGARY KFT-2021DE007999

PATIENT
  Age: 48 Year
  Sex: Female

DRUGS (25)
  1. DOXORUBICIN [Suspect]
     Active Substance: DOXORUBICIN
     Indication: Diffuse large B-cell lymphoma
     Dosage: 50 MILLIGRAM/SQ. METER (50 MG/M2 DAY 1 (R-CHOP) X 4 CYCLES)
     Route: 042
  2. DOXORUBICIN [Suspect]
     Active Substance: DOXORUBICIN
     Indication: Central nervous system lymphoma
     Dosage: UNK
  3. METHOTREXATE [Suspect]
     Active Substance: METHOTREXATE
     Indication: Diffuse large B-cell lymphoma
     Dosage: UNK (4 GRAM PER SQUARE METRE (4 GRAM PER SQUARE METRE))
  4. METHOTREXATE [Suspect]
     Active Substance: METHOTREXATE
     Indication: Central nervous system lymphoma
     Dosage: UNK
  5. CYTARABINE [Suspect]
     Active Substance: CYTARABINE
     Indication: Central nervous system lymphoma
     Dosage: UNK (4 G/M2 DAY 1-2 (R-ARAC/TT) X 2 CYCLES (REPEATED AFTER 21 DAYS))
  6. CYTARABINE [Suspect]
     Active Substance: CYTARABINE
     Indication: Diffuse large B-cell lymphoma
  7. DOXORUBICIN [Suspect]
     Active Substance: DOXORUBICIN
     Indication: Central nervous system lymphoma
     Dosage: UNK
  8. BICNU [Suspect]
     Active Substance: CARMUSTINE
     Indication: Central nervous system lymphoma
     Dosage: 400 MILLIGRAM/SQ. METER (400 MG/M2 DAY 6 (R-HD-BCNU/TT))
  9. BICNU [Suspect]
     Active Substance: CARMUSTINE
     Indication: Diffuse large B-cell lymphoma
  10. RITUXIMAB [Suspect]
     Active Substance: RITUXIMAB
     Indication: Diffuse large B-cell lymphoma
     Dosage: 1400 MILLIGRAM (1400 MG ABS DAY 7 (R-HD-BCNU/TT))
     Route: 058
  11. RITUXIMAB [Suspect]
     Active Substance: RITUXIMAB
     Indication: Central nervous system lymphoma
     Dosage: 1400 MILLIGRAM (1400 MG ABS DAY 1 (R-ARAC/TT) X 2 CYCLES (REPEATED AFTER 21 DAYS) )
     Route: 058
  12. RITUXIMAB [Suspect]
     Active Substance: RITUXIMAB
     Dosage: 375 MILLIGRAM/SQ. METER (375 MG/M2 DAY 0 (R-MTX) X 4 CYCLES)
     Route: 042
  13. RITUXIMAB [Suspect]
     Active Substance: RITUXIMAB
     Dosage: 1400 MILLIGRAM (1400 MG ABS DAY 0 (R-MTX) X 4 CYCLES)
     Route: 058
  14. RITUXIMAB [Suspect]
     Active Substance: RITUXIMAB
     Dosage: 375 MILLIGRAM/SQ. METER (375 MG/M2 DAY 1 (R-CHOP) X 4 CYCLES)
     Route: 042
  15. RITUXIMAB [Suspect]
     Active Substance: RITUXIMAB
     Dosage: 1400 MILLIGRAM (1400 MG ABS DAY 1 (R-CHOP) X 4 CYCLES)
     Route: 058
  16. VINCRISTINE [Suspect]
     Active Substance: VINCRISTINE
     Indication: Diffuse large B-cell lymphoma
     Dosage: UNK (2/1 MG ABS DAY 1 (R-CHOP) X 4 CYCLES)
     Route: 042
  17. VINCRISTINE [Suspect]
     Active Substance: VINCRISTINE
     Indication: Central nervous system lymphoma
     Dosage: 2 MILLIGRAM (AS A PART OF R-CHOP REGIMEN)
     Route: 042
  18. CYCLOPHOSPHAMIDE [Suspect]
     Active Substance: CYCLOPHOSPHAMIDE
     Indication: Central nervous system lymphoma
     Dosage: 750 MILLIGRAM/SQ. METER (750 MG/M2 DAY 1 (R-CHOP) X 4 CYCLES)
     Route: 042
  19. CYCLOPHOSPHAMIDE [Suspect]
     Active Substance: CYCLOPHOSPHAMIDE
     Indication: Diffuse large B-cell lymphoma
  20. THIOTEPA [Suspect]
     Active Substance: THIOTEPA
     Indication: Diffuse large B-cell lymphoma
     Dosage: 40 MILLIGRAM/SQ. METER
  21. THIOTEPA [Suspect]
     Active Substance: THIOTEPA
     Indication: Central nervous system lymphoma
     Dosage: 5 MILLIGRAM/SQ. METER
  22. LEUCOVORIN [Suspect]
     Active Substance: LEUCOVORIN
     Indication: Antiviral prophylaxis
     Dosage: UNK (RESCUE)
  23. PREDNISONE [Suspect]
     Active Substance: PREDNISONE
     Indication: Central nervous system lymphoma
     Dosage: 100 MILLIGRAM (100 MG ABS DAYS 1-5 (R-CHOP) X 4 CYCLES)
     Route: 042
  24. PREDNISONE [Suspect]
     Active Substance: PREDNISONE
     Indication: Diffuse large B-cell lymphoma
  25. ACYCLOVIR [Concomitant]
     Active Substance: ACYCLOVIR
     Indication: Prophylaxis
     Dosage: 800 MILLIGRAM, BID (800 MG, 2X PER DAY)

REACTIONS (15)
  - Haematotoxicity [Unknown]
  - Acute kidney injury [Recovered/Resolved]
  - Cytomegalovirus infection reactivation [Unknown]
  - Device related infection [Unknown]
  - Clostridium difficile colitis [Unknown]
  - Thrombocytopenia [Unknown]
  - Anaemia [Unknown]
  - Urinary tract infection [Unknown]
  - Herpes simplex reactivation [Unknown]
  - Renal impairment [Unknown]
  - Febrile neutropenia [Unknown]
  - Candida infection [Unknown]
  - Epstein-Barr virus infection reactivation [Unknown]
  - Mucosal inflammation [Unknown]
  - Hepatic enzyme increased [Unknown]
